FAERS Safety Report 6222503-X (Version None)
Quarter: 2009Q2

REPORT INFORMATION
  Report Type: 
  Country: None (occurrence: None)
  Receive Date: 20090608
  Receipt Date: 20090601
  Transmission Date: 20091009
  Serious: Yes (Hospitalization)
  Sender: FDA-Public Use
  Company Number: US-GENENTECH-284231

PATIENT

DRUGS (2)
  1. BLINDED BEVACIZUMAB [Suspect]
     Indication: OVARIAN CANCER
     Dosage: 15 MG/KG, Q21D STARTING CYCLE 7 X 16 CYCLES
     Route: 042
     Dates: start: 20081121
  2. BLINDED PLACEBO [Suspect]
     Indication: OVARIAN CANCER
     Dosage: 15 MG/KG, Q21D STARTING CYCLE 7 X 16 CYCLES
     Route: 042
     Dates: start: 20081121

REACTIONS (1)
  - INTESTINAL OBSTRUCTION [None]
